FAERS Safety Report 21370686 (Version 1)
Quarter: 2022Q3

REPORT INFORMATION
  Report Type: Spontaneous
  Country: DE (occurrence: DE)
  Receive Date: 20220923
  Receipt Date: 20220923
  Transmission Date: 20221027
  Serious: Yes (Hospitalization, Other)
  Sender: FDA-Public Use
  Company Number: DE-ADRED-05700-01

PATIENT
  Age: 67 Year
  Sex: Female
  Weight: 95 kg

DRUGS (9)
  1. METFORMIN [Suspect]
     Active Substance: METFORMIN HYDROCHLORIDE
     Indication: Product used for unknown indication
     Dosage: 1000 MG, PAUSED SINCE 06 MAR 2020, TABLETS
     Route: 048
     Dates: end: 20200306
  2. CANDESARTAN CILEXETIL\HYDROCHLOROTHIAZIDE [Suspect]
     Active Substance: CANDESARTAN CILEXETIL\HYDROCHLOROTHIAZIDE
     Indication: Product used for unknown indication
     Dosage: 16/12.5 MG, DISCONTINUED ON 07 MAR 2020, TABLETS
     Route: 048
     Dates: end: 20200307
  3. LEVOTHYROXINE SODIUM;POTASSIUM IODIDE [Concomitant]
     Indication: Product used for unknown indication
     Dosage: 0.196/0.1 MG, 1-0-0-0, TABLETS
     Route: 048
  4. SODIUM BICARBONATE [Concomitant]
     Active Substance: SODIUM BICARBONATE
     Indication: Product used for unknown indication
     Dosage: 1 G, 1-0-0-0, SUSTAINED RELEASE TABLETS
     Route: 048
  5. PANTOPRAZOLE [Concomitant]
     Active Substance: PANTOPRAZOLE
     Indication: Product used for unknown indication
     Dosage: 40 MG, ACCORDING TO THE SCHEME, RETARD TABLETS
     Route: 048
  6. ALLOPURINOL [Concomitant]
     Active Substance: ALLOPURINOL
     Indication: Product used for unknown indication
     Dosage: 100 MG, 1-0-0-0, TABLETS
     Route: 048
  7. METAMIZOL [Concomitant]
     Active Substance: METAMIZOLE SODIUM
     Indication: Product used for unknown indication
     Dosage: 500 MG, 1-1-1-0, TABLETS
     Route: 048
  8. NALOXONE HYDROCHLORIDE\TILIDINE HYDROCHLORIDE [Concomitant]
     Active Substance: NALOXONE HYDROCHLORIDE\TILIDINE HYDROCHLORIDE
     Indication: Product used for unknown indication
     Dosage: 4/50 MG, 0-0-1-0, RETARD TABLETS
     Route: 048
  9. BISOPROLOL [Concomitant]
     Active Substance: BISOPROLOL
     Indication: Product used for unknown indication
     Dosage: 5 MG, 1-0-0-0, TABLETS
     Route: 048

REACTIONS (5)
  - Metabolic acidosis [Unknown]
  - Hyponatraemia [Unknown]
  - Acute kidney injury [Unknown]
  - Pain [Unknown]
  - Renal impairment [Unknown]
